FAERS Safety Report 4758715-1 (Version None)
Quarter: 2005Q3

REPORT INFORMATION
  Report Type: 
  Country: None (occurrence: None)
  Receive Date: 20050829
  Receipt Date: 20050812
  Transmission Date: 20060218
  Serious: Yes (Hospitalization)
  Sender: FDA-Public Use
  Company Number: 217196

PATIENT
  Age: 55 Year
  Sex: Male
  Weight: 82.2 kg

DRUGS (9)
  1. AVASTIN [Suspect]
     Indication: COLORECTAL CANCER METASTATIC
     Dosage: 5 MG/KG, Q2W, INTRAVENOUS
     Route: 042
     Dates: start: 20050628
  2. IRINOTECAN HCL [Suspect]
     Indication: COLORECTAL CANCER METASTATIC
     Dosage: 180 MG/M2, Q2W, INTRAVENOUS
     Route: 042
     Dates: start: 20050628
  3. LEUCOVORIN CALCIUM [Suspect]
     Indication: COLORECTAL CANCER METASTATIC
     Dosage: 499 MG/M2, Q2W, INTRAVENOUS
     Route: 042
     Dates: start: 20050628
  4. FLUOROURACIL [Suspect]
     Indication: COLORECTAL CANCER METASTATIC
     Dosage: 820 MG, Q2W, INTRAVENOUS
     Route: 042
     Dates: start: 20050628, end: 20050726
  5. PERCOCET [Concomitant]
  6. OXYCONTIN [Concomitant]
  7. PREVACID [Concomitant]
  8. ZOFRAN [Concomitant]
  9. DECADRON [Concomitant]

REACTIONS (1)
  - ENTERITIS [None]
